FAERS Safety Report 5289437-9 (Version None)
Quarter: 2007Q2

REPORT INFORMATION
  Report Type: 
  Country: None (occurrence: None)
  Receive Date: 20070406
  Receipt Date: 20070328
  Transmission Date: 20071010
  Serious: Yes (Other)
  Sender: FDA-Public Use
  Company Number: PHEH2007US03632

PATIENT
  Sex: Female

DRUGS (1)
  1. EXJADE [Suspect]
     Indication: IRON OVERLOAD
     Dosage: 1000 MG, QD
     Route: 048
     Dates: start: 20060818, end: 20070202

REACTIONS (4)
  - EYE OEDEMA [None]
  - OEDEMA PERIPHERAL [None]
  - PERICARDITIS [None]
  - WEIGHT INCREASED [None]
